FAERS Safety Report 10042423 (Version 1)
Quarter: 2014Q1

REPORT INFORMATION
  Report Type: Spontaneous
  Country: ES (occurrence: ES)
  Receive Date: 20140327
  Receipt Date: 20140327
  Transmission Date: 20141002
  Serious: Yes (Other)
  Sender: FDA-Public Use
  Company Number: ES-ASTRAZENECA-2014SE18767

PATIENT
  Age: 41 Year
  Sex: Female

DRUGS (3)
  1. LIDOCAINE [Suspect]
     Route: 008
  2. LIDOCAINE [Suspect]
     Dosage: 7ML AT RATE OF10ML/H
     Route: 008
  3. LEVOBUPIVACAINE [Suspect]

REACTIONS (5)
  - Haemoglobin decreased [Unknown]
  - Headache [Unknown]
  - Pallor [Unknown]
  - Dizziness [Unknown]
  - Palpitations [Unknown]
